FAERS Safety Report 25834891 (Version 1)
Quarter: 2025Q3

REPORT INFORMATION
  Report Type: Spontaneous
  Country: EU (occurrence: EU)
  Receive Date: 20250923
  Receipt Date: 20250923
  Transmission Date: 20251020
  Serious: Yes (Other)
  Sender: HIKMA
  Company Number: None

PATIENT
  Age: 64 Year
  Sex: Female

DRUGS (3)
  1. CARBOPLATIN [Suspect]
     Active Substance: CARBOPLATIN
     Indication: Endometrial cancer metastatic
     Route: 042
     Dates: start: 20250808, end: 20250808
  2. JEMPERLI [Suspect]
     Active Substance: DOSTARLIMAB-GXLY
     Indication: Endometrial cancer metastatic
     Route: 042
     Dates: start: 20250808, end: 20250808
  3. PACLITAXEL [Suspect]
     Active Substance: PACLITAXEL
     Indication: Endometrial cancer metastatic
     Route: 042
     Dates: start: 20250808, end: 20250808

REACTIONS (2)
  - Erythema [Recovered/Resolved]
  - Toxic skin eruption [Recovered/Resolved]

NARRATIVE: CASE EVENT DATE: 20250809
